FAERS Safety Report 16932262 (Version 1)
Quarter: 2019Q4

REPORT INFORMATION
  Report Type: Spontaneous
  Country: GR (occurrence: GR)
  Receive Date: 20191017
  Receipt Date: 20191017
  Transmission Date: 20200122
  Serious: Yes (Other)
  Sender: FDA-Public Use
  Company Number: GR-009507513-1910GRC006272

PATIENT
  Age: 60 Year
  Sex: Female
  Weight: 80 kg

DRUGS (3)
  1. EZETROL [Suspect]
     Active Substance: EZETIMIBE
     Indication: DYSLIPIDAEMIA
     Dosage: 10 MILLIGRAM
     Route: 048
     Dates: start: 201904, end: 201906
  2. LIPITOR [Suspect]
     Active Substance: ATORVASTATIN CALCIUM
     Indication: DYSLIPIDAEMIA
     Dosage: 20 MILLIGRAM
     Route: 048
     Dates: start: 20171030, end: 201711
  3. PITAVASTATIN CALCIUM [Suspect]
     Active Substance: PITAVASTATIN CALCIUM
     Indication: DYSLIPIDAEMIA
     Dosage: 4 MILLIGRAM
     Route: 048
     Dates: start: 20171113, end: 201712

REACTIONS (6)
  - Vomiting [Unknown]
  - Vomiting [Unknown]
  - Myalgia [Unknown]
  - Myalgia [Unknown]
  - Vomiting [Unknown]
  - Myalgia [Unknown]

NARRATIVE: CASE EVENT DATE: 201710
